FAERS Safety Report 5379004-0 (Version None)
Quarter: 2007Q2

REPORT INFORMATION
  Report Type: 
  Country: None (occurrence: None)
  Receive Date: 20070626
  Receipt Date: 20070614
  Transmission Date: 20071010
  Serious: Yes (Hospitalization, Other)
  Sender: FDA-Public Use
  Company Number: THYM-11465

PATIENT
  Age: 47 Year
  Sex: Male
  Weight: 117.8 kg

DRUGS (16)
  1. THYMOGLOBULIN [Suspect]
     Indication: LIVER TRANSPLANT
     Dosage: 189 MG QD IV
     Route: 042
     Dates: start: 20061027, end: 20061027
  2. SOLU-MEDROL [Concomitant]
  3. SOLU-CORTEF [Concomitant]
  4. PROGRAF [Concomitant]
  5. PREDNISONE [Concomitant]
  6. SULFATRIM [Concomitant]
  7. VALCYTE [Concomitant]
  8. PROTONIX [Concomitant]
  9. CORTEF [Concomitant]
  10. NIFEDIPINE [Concomitant]
  11. MULTI-VITAMIN [Concomitant]
  12. SURFAK [Concomitant]
  13. HUMALOG [Concomitant]
  14. LANTUS [Concomitant]
  15. FLAGYL [Concomitant]
  16. LEVOTHYROXINE SODIUM [Concomitant]

REACTIONS (4)
  - ADRENAL INSUFFICIENCY [None]
  - B-CELL LYMPHOMA [None]
  - LYMPHOPROLIFERATIVE DISORDER [None]
  - RENAL FAILURE ACUTE [None]
